FAERS Safety Report 6371654-8 (Version None)
Quarter: 2009Q3

REPORT INFORMATION
  Report Type: 
  Country: None (occurrence: None)
  Receive Date: 20090923
  Receipt Date: 20081002
  Transmission Date: 20100115
  Serious: Yes (Hospitalization, Other)
  Sender: FDA-Public Use
  Company Number: US-ASTRAZENECA-2008UW06618

PATIENT
  Age: 50 Year
  Sex: Male
  Weight: 79.8 kg

DRUGS (18)
  1. SEROQUEL [Suspect]
     Indication: SCHIZOPHRENIA, PARANOID TYPE
     Route: 048
     Dates: start: 20040620, end: 20040701
  2. SEROQUEL [Suspect]
     Route: 048
     Dates: start: 20040809, end: 20041208
  3. SEROQUEL [Suspect]
     Route: 048
     Dates: start: 20041215
  4. SEROQUEL [Suspect]
     Route: 048
     Dates: start: 20060130, end: 20060301
  5. RISPERIDONE [Concomitant]
     Route: 048
     Dates: start: 20000915
  6. RISPERIDONE [Concomitant]
     Dates: start: 20001108, end: 20010101
  7. RISPERIDONE [Concomitant]
     Dates: start: 20030618
  8. THORAZINE [Concomitant]
     Dates: start: 20030101
  9. TRILAFON [Concomitant]
     Indication: ANXIETY
     Dosage: 4 MG AND 8 MG
     Route: 048
     Dates: start: 19981221, end: 19990101
  10. EFFEXOR [Concomitant]
     Dates: start: 20040317
  11. EFFEXOR [Concomitant]
     Dates: start: 20031212, end: 20040101
  12. BENZTROPINE MESYLATE [Concomitant]
     Dates: start: 19990929, end: 20000101
  13. CITALOPRAM HYDROBROMIDE [Concomitant]
     Dosage: ONE HALF OF 40 MG AT BEDTIME
     Route: 048
     Dates: start: 20010104, end: 20030101
  14. LORAZEPAM [Concomitant]
     Route: 048
     Dates: start: 19990614, end: 19990101
  15. NALTREXONE HYDROCHLORIDE [Concomitant]
     Route: 048
     Dates: start: 20030618, end: 20030101
  16. SERTRALINE HYDROCHLORIDE [Concomitant]
     Dosage: 50 MG AND 100 MG
     Route: 048
     Dates: start: 19980203, end: 20000101
  17. TRAZODONE HYDROCHLORIDE [Concomitant]
     Indication: SLEEP DISORDER
     Dosage: ONE TO THREE TABLETS AT BEDTIME AS NEEDED
     Route: 048
     Dates: start: 20060718, end: 20060101
  18. ZIPRASIDONE HCL [Concomitant]
     Route: 048
     Dates: start: 20060718, end: 20060101

REACTIONS (4)
  - BLOOD TRIGLYCERIDES INCREASED [None]
  - HYPEROSMOLAR STATE [None]
  - SOMNOLENCE [None]
  - TYPE 2 DIABETES MELLITUS [None]
